FAERS Safety Report 16144494 (Version 2)
Quarter: 2019Q2

REPORT INFORMATION
  Report Type: Report from Study
  Country: None (occurrence: CO)
  Receive Date: 20190402
  Receipt Date: 20190510
  Transmission Date: 20190711
  Serious: Yes (Other)
  Sender: FDA-Public Use
  Company Number: CO-ABBVIE-18K-036-2591407-00

PATIENT
  Age: 50 Year
  Sex: Female
  Weight: 83 kg

DRUGS (2)
  1. HUMIRA [Suspect]
     Active Substance: ADALIMUMAB
     Indication: ANKYLOSING SPONDYLITIS
     Route: 058
  2. HUMIRA [Suspect]
     Active Substance: ADALIMUMAB
     Indication: ANKYLOSING SPONDYLITIS
     Route: 058
     Dates: start: 20150819

REACTIONS (5)
  - Tissue infiltration [Recovering/Resolving]
  - Ocular hyperaemia [Recovering/Resolving]
  - Pain in extremity [Recovering/Resolving]
  - Dry eye [Recovering/Resolving]
  - Ankylosing spondylitis [Not Recovered/Not Resolved]

NARRATIVE: CASE EVENT DATE: 20181205
